FAERS Safety Report 9478525 (Version 1)
Quarter: 2013Q3

REPORT INFORMATION
  Report Type: Report from Study
  Country: DE (occurrence: DE)
  Receive Date: 20130827
  Receipt Date: 20130827
  Transmission Date: 20140515
  Serious: Yes (Hospitalization)
  Sender: FDA-Public Use
  Company Number: DE-ABBOTT-13P-062-1136955-00

PATIENT
  Age: 37 Year
  Sex: Male
  Weight: 86.5 kg

DRUGS (1)
  1. ZEMPLAR [Suspect]
     Indication: HYPERPARATHYROIDISM SECONDARY
     Route: 042
     Dates: start: 20120813, end: 20130514

REACTIONS (3)
  - Parathyroidectomy [Unknown]
  - Parathyroidectomy [Unknown]
  - Hyperparathyroidism tertiary [Not Recovered/Not Resolved]
